FAERS Safety Report 5902117-9 (Version None)
Quarter: 2008Q3

REPORT INFORMATION
  Report Type: 
  Country: None (occurrence: None)
  Receive Date: 20080929
  Receipt Date: 20080917
  Transmission Date: 20090109
  Serious: Yes (Other)
  Sender: FDA-Public Use
  Company Number: ZA-PFIZER INC-2008078711

PATIENT
  Age: 80 Year
  Sex: Female

DRUGS (5)
  1. LYRICA [Suspect]
     Indication: NEURALGIA
     Route: 048
     Dates: start: 20080917
  2. LYRICA [Suspect]
     Indication: BACK PAIN
     Dosage: TEXT:25MG OD DAILY TDD:25MG
     Route: 048
     Dates: start: 20080917
  3. ADALAT [Concomitant]
     Route: 048
  4. ASPIRIN [Concomitant]
     Route: 048
  5. PREDNISONE [Concomitant]
     Route: 048

REACTIONS (3)
  - EYE DISCHARGE [None]
  - EYE PAIN [None]
  - OCULAR HYPERAEMIA [None]
